FAERS Safety Report 24684647 (Version 1)
Quarter: 2024Q4

REPORT INFORMATION
  Report Type: Spontaneous
  Country: KR (occurrence: KR)
  Receive Date: 20241202
  Receipt Date: 20241202
  Transmission Date: 20250115
  Serious: Yes (Other)
  Sender: ALKEM
  Company Number: KR-ALKEM LABORATORIES LIMITED-KR-ALKEM-2024-17894

PATIENT

DRUGS (3)
  1. ISONIAZID [Suspect]
     Active Substance: ISONIAZID
     Indication: Tuberculosis
     Dosage: 1000 MILLIGRAM, QD
     Route: 048
  2. ISONIAZID [Suspect]
     Active Substance: ISONIAZID
     Indication: Meningitis tuberculous
     Dosage: 35-37 MG, EVERY 3 DAYS
     Route: 037
  3. ISONIAZID [Suspect]
     Active Substance: ISONIAZID
     Dosage: 400 MILLIGRAM, QD
     Route: 048

REACTIONS (2)
  - Hepatotoxicity [Unknown]
  - Hepatitis [Unknown]
